FAERS Safety Report 7795957-5 (Version None)
Quarter: 2011Q4

REPORT INFORMATION
  Report Type: 
  Country: None (occurrence: None)
  Receive Date: 20111004
  Receipt Date: 20110714
  Transmission Date: 20120403
  Serious: Yes (Other)
  Sender: FDA-Public Use
  Company Number: PHHY2011DE63481

PATIENT
  Sex: Male

DRUGS (11)
  1. ALLOPURINOL [Suspect]
     Indication: HYPERURICAEMIA
     Dosage: 300 MG, QD
     Route: 050
     Dates: start: 19970201
  2. PENTAERYTHRITOL TETRANITRATE [Suspect]
     Indication: CORONARY ARTERY DISEASE
     Dosage: 160 MG, QD
     Route: 048
     Dates: start: 19970101
  3. CARVEDILOL [Suspect]
     Indication: HYPERTENSION
     Dosage: 12.5 MG, QD
     Dates: start: 19970201
  4. SIMVASTATIN [Suspect]
     Dosage: 40 MG, QD
     Route: 048
     Dates: start: 19970101
  5. TAMSULOSIN HCL [Suspect]
     Indication: BENIGN PROSTATIC HYPERPLASIA
     Dosage: 0.4 MG, QD
     Route: 048
     Dates: start: 20100303
  6. ROCALTROL [Suspect]
     Indication: NEPHROGENIC ANAEMIA
     Dosage: 0.25 MG, QD
     Route: 048
     Dates: start: 20100303
  7. FUROSEMIDE [Suspect]
     Indication: RENAL FAILURE
     Dosage: 250 MG, QD
     Dates: start: 20100303
  8. CLOPIDOGREL [Suspect]
     Indication: CORONARY ARTERY DISEASE
     Dosage: 75 MG, QD
     Route: 048
     Dates: start: 19970201
  9. RASILEZ [Suspect]
     Indication: HYPERTENSION
     Dosage: 300 MG, QD
  10. REPAGLINIDE [Suspect]
     Indication: DIABETES MELLITUS
     Dosage: 6 MG, QD
     Route: 048
     Dates: start: 20100902
  11. METFORMIN HCL [Suspect]
     Indication: DIABETES MELLITUS
     Dosage: 50/850 MG, QD
     Dates: start: 20110224, end: 20110316

REACTIONS (3)
  - ATRIAL FIBRILLATION [None]
  - HEART RATE DECREASED [None]
  - ANGINA PECTORIS [None]
